FAERS Safety Report 9155636 (Version 1)
Quarter: 2013Q1

REPORT INFORMATION
  Report Type: Spontaneous
  Country: US (occurrence: US)
  Receive Date: 20130311
  Receipt Date: 20130311
  Transmission Date: 20140127
  Serious: Yes (Hospitalization, Other)
  Sender: FDA-Public Use
  Company Number: US-BAYER-2013-027635

PATIENT
  Age: 44 Year
  Sex: Female

DRUGS (5)
  1. ALEVE CAPLET/TABLET,MIDOL EXTENDED RELIEF CAPLET [Suspect]
     Dosage: UNK
     Dates: end: 2008
  2. HUMIRA [Suspect]
     Indication: RHEUMATOID ARTHRITIS
     Dosage: 40 MG, Q2WK
     Dates: start: 200707, end: 201206
  3. TRAMADOL [Suspect]
     Indication: PAIN
     Dosage: UNK
  4. METHOTREXATE [Concomitant]
     Indication: RHEUMATOID ARTHRITIS
     Dosage: UNK
  5. HUMULIN [INSULIN HUMAN] [Concomitant]
     Indication: TYPE 1 DIABETES MELLITUS
     Dosage: UNK

REACTIONS (4)
  - Haemolytic anaemia [None]
  - Myocardial infarction [Recovered/Resolved]
  - Vomiting [None]
  - Thyroid function test abnormal [None]
